FAERS Safety Report 10984645 (Version 2)
Quarter: 2015Q2

REPORT INFORMATION
  Report Type: Spontaneous
  Country: US (occurrence: US)
  Receive Date: 20150403
  Receipt Date: 20150525
  Transmission Date: 20150821
  Serious: No
  Sender: FDA-Public Use
  Company Number: US-JNJFOC-20130608197

PATIENT
  Age: 81 Year
  Sex: Male
  Weight: 61.24 kg

DRUGS (6)
  1. IMODIUM [Suspect]
     Active Substance: LOPERAMIDE HYDROCHLORIDE
     Route: 065
  2. ARICEPT [Concomitant]
     Active Substance: DONEPEZIL HYDROCHLORIDE
     Route: 065
  3. NAMENDA [Concomitant]
     Active Substance: MEMANTINE HYDROCHLORIDE
     Indication: MEMORY IMPAIRMENT
     Route: 065
  4. ZOLOFT [Concomitant]
     Active Substance: SERTRALINE HYDROCHLORIDE
     Route: 065
  5. IMODIUM [Suspect]
     Active Substance: LOPERAMIDE HYDROCHLORIDE
     Indication: PRODUCT USED FOR UNKNOWN INDICATION
     Route: 065
  6. DONEPEZIL [Concomitant]
     Active Substance: DONEPEZIL
     Route: 065

REACTIONS (1)
  - Drug effect decreased [Unknown]
